FAERS Safety Report 8582007-6 (Version None)
Quarter: 2012Q3

REPORT INFORMATION
  Report Type: 
  Country: None (occurrence: None)
  Receive Date: 20120809
  Receipt Date: 20120802
  Transmission Date: 20120928
  Serious: Yes (Hospitalization, Other)
  Sender: FDA-Public Use
  Company Number: IT-ASTRAZENECA-2012SE54887

PATIENT
  Age: 80 Year
  Sex: Male

DRUGS (2)
  1. TRIPTORELIN [Concomitant]
  2. BICALUTAMIDE [Suspect]
     Indication: PROSTATE CANCER
     Route: 048

REACTIONS (5)
  - HYPOGONADISM [None]
  - ACUTE MYOCARDIAL INFARCTION [None]
  - FATIGUE [None]
  - WEIGHT INCREASED [None]
  - HYPERGLYCAEMIA [None]
